FAERS Safety Report 9617973 (Version 2)
Quarter: 2013Q4

REPORT INFORMATION
  Report Type: Report from Study
  Country: CO (occurrence: CO)
  Receive Date: 20131011
  Receipt Date: 20131011
  Transmission Date: 20140711
  Serious: Yes (Other)
  Sender: FDA-Public Use
  Company Number: CO-ABBVIE-13P-036-1122799-00

PATIENT
  Age: 21 Year
  Sex: Female
  Weight: 55 kg

DRUGS (3)
  1. HUMIRA [Suspect]
     Indication: PSORIASIS
     Dates: start: 20130403, end: 20130702
  2. HUMIRA [Suspect]
     Route: 058
     Dates: start: 201309
  3. DYDROGESTERONE [Concomitant]
     Indication: ENDOMETRIOSIS
     Dates: start: 201307

REACTIONS (3)
  - Salpingitis [Recovered/Resolved]
  - Abdominal pain [Recovered/Resolved]
  - Endometriosis [Recovered/Resolved]
